FAERS Safety Report 4578415-0 (Version None)
Quarter: 2005Q1

REPORT INFORMATION
  Report Type: 
  Country: None (occurrence: None)
  Receive Date: 20050204
  Receipt Date: 20050204
  Transmission Date: 20050727
  Serious: Yes (Other)
  Sender: FDA-Public Use
  Company Number: None

PATIENT
  Age: 34 Year
  Sex: Female

DRUGS (1)
  1. FENTANYL [Suspect]
     Indication: PAIN MANAGEMENT
     Dosage: 50MCG TOPICAL Q3D
     Route: 061
     Dates: start: 20041122, end: 20041129

REACTIONS (4)
  - NAUSEA [None]
  - OROPHARYNGEAL SWELLING [None]
  - RASH [None]
  - VOMITING [None]
